FAERS Safety Report 15810932 (Version 3)
Quarter: 2019Q1

REPORT INFORMATION
  Report Type: Spontaneous
  Country: FR (occurrence: FR)
  Receive Date: 20190111
  Receipt Date: 20190308
  Transmission Date: 20190417
  Serious: Yes (Other)
  Sender: FDA-Public Use
  Company Number: FR-REGENERON PHARMACEUTICALS, INC.-2019-10694

PATIENT

DRUGS (4)
  1. EYLEA [Suspect]
     Active Substance: AFLIBERCEPT
     Indication: RETINAL VEIN OCCLUSION
     Dosage: UNK
     Route: 031
     Dates: start: 201810, end: 201810
  2. EYLEA [Suspect]
     Active Substance: AFLIBERCEPT
     Indication: RETINAL VEIN OCCLUSION
     Dosage: TOTAL 6 EYLEA INJECTION, 3 OF THOSE WAS ON THE LEFT EYE
     Route: 031
     Dates: start: 2017
  3. EYLEA [Suspect]
     Active Substance: AFLIBERCEPT
     Dosage: UNK
     Route: 031
     Dates: start: 201812, end: 201812
  4. EYLEA [Suspect]
     Active Substance: AFLIBERCEPT
     Dosage: UNK
     Route: 031
     Dates: start: 201901, end: 201901

REACTIONS (3)
  - Ocular procedural complication [Recovered/Resolved]
  - Ocular procedural complication [Recovered/Resolved]
  - Ocular procedural complication [Recovered/Resolved]

NARRATIVE: CASE EVENT DATE: 201810
